FAERS Safety Report 4417272-X (Version None)
Quarter: 2004Q3

REPORT INFORMATION
  Report Type: 
  Country: None (occurrence: None)
  Receive Date: 20040806
  Receipt Date: 20040712
  Transmission Date: 20050211
  Serious: Yes (Death)
  Sender: FDA-Public Use
  Company Number: JP-GLAXOSMITHKLINE-B0339142A

PATIENT
  Age: 26 Year
  Sex: Male
  Weight: 52 kg

DRUGS (13)
  1. FLOLAN [Suspect]
     Indication: PULMONARY HYPERTENSION
     Route: 042
     Dates: start: 20030415, end: 20030725
  2. WARFARIN SODIUM [Concomitant]
     Indication: PULMONARY HYPERTENSION
     Route: 048
  3. DOBUTREX [Concomitant]
     Indication: CARDIAC FAILURE
     Route: 042
     Dates: start: 20030630, end: 20040725
  4. CARBENIN [Concomitant]
     Indication: RESPIRATORY TRACT INFECTION
     Route: 042
     Dates: start: 20030510, end: 20030705
  5. CEFAZOLIN [Concomitant]
     Indication: RESPIRATORY TRACT INFECTION
     Dosage: 3G PER DAY
     Route: 042
     Dates: start: 20030516, end: 20030702
  6. LASIX [Concomitant]
     Indication: RIGHT VENTRICULAR FAILURE
     Route: 042
     Dates: start: 20030703, end: 20030722
  7. DIFLUCAN [Concomitant]
     Indication: RESPIRATORY TRACT INFECTION
     Route: 042
     Dates: start: 20030703, end: 20030722
  8. VANCOMYCIN HCL [Concomitant]
     Indication: STAPHYLOCOCCAL INFECTION
     Dosage: 2G PER DAY
     Route: 042
     Dates: start: 20030708, end: 20030713
  9. PAZULFLOXACIN MESILATE [Concomitant]
     Indication: STAPHYLOCOCCAL INFECTION
     Dosage: 500MG PER DAY
     Route: 042
     Dates: start: 20030705, end: 20030712
  10. TIENAM [Concomitant]
     Indication: RESPIRATORY TRACT INFECTION
     Dosage: 1G PER DAY
     Route: 042
     Dates: start: 20030711, end: 20030724
  11. CLINDAMYCIN HCL [Concomitant]
     Indication: RESPIRATORY TRACT INFECTION
     Dosage: 600MG PER DAY
     Route: 042
     Dates: start: 20030711, end: 20030714
  12. HABEKACIN [Concomitant]
     Indication: RESPIRATORY TRACT INFECTION
     Dosage: 200MG PER DAY
     Route: 042
     Dates: start: 20030714, end: 20030724
  13. UNSPECIFIED DRUG [Concomitant]
     Indication: RIGHT VENTRICULAR FAILURE
     Route: 042
     Dates: start: 20030415, end: 20030725

REACTIONS (11)
  - ATRIAL PRESSURE INCREASED [None]
  - DRUG INEFFECTIVE [None]
  - DYSPNOEA EXACERBATED [None]
  - HEART RATE INCREASED [None]
  - LUNG NEOPLASM [None]
  - PULMONARY HYPERTENSION [None]
  - PULMONARY VENO-OCCLUSIVE DISEASE [None]
  - PYREXIA [None]
  - RESPIRATORY FAILURE [None]
  - RIGHT VENTRICULAR FAILURE [None]
  - STAPHYLOCOCCAL INFECTION [None]
